FAERS Safety Report 13163694 (Version 2)
Quarter: 2017Q3

REPORT INFORMATION
  Report Type: Spontaneous
  Country: US (occurrence: US)
  Receive Date: 20170130
  Receipt Date: 20170703
  Transmission Date: 20171127
  Serious: No
  Sender: FDA-Public Use
  Company Number: US-TEVA-730969ACC

PATIENT
  Sex: Male

DRUGS (1)
  1. COPAXONE [Suspect]
     Active Substance: GLATIRAMER ACETATE
     Indication: MULTIPLE SCLEROSIS
     Dosage: 17.1429 MILLIGRAM DAILY;
     Route: 058
     Dates: start: 20160129

REACTIONS (2)
  - Pruritus [Not Recovered/Not Resolved]
  - Extra dose administered [Unknown]
